APPROVED DRUG PRODUCT: LUMENHANCE
Active Ingredient: MANGANESE CHLORIDE TETRAHYDRATE
Strength: 3.49MG/GM
Dosage Form/Route: FOR SOLUTION;ORAL
Application: N020686 | Product #001
Applicant: BRACCO DIAGNOSTICS INC
Approved: Dec 19, 1997 | RLD: No | RS: No | Type: DISCN